FAERS Safety Report 16360219 (Version 1)
Quarter: 2019Q2

REPORT INFORMATION
  Report Type: Spontaneous
  Country: FR (occurrence: FR)
  Receive Date: 20190528
  Receipt Date: 20190528
  Transmission Date: 20190711
  Serious: Yes (Hospitalization)
  Sender: FDA-Public Use
  Company Number: FR-TEVA-2019-FR-1055588

PATIENT
  Age: 85 Year
  Sex: Male
  Weight: 66.2 kg

DRUGS (3)
  1. ATORVASTATINE [Suspect]
     Active Substance: ATORVASTATIN
     Indication: HYPERCHOLESTEROLAEMIA
     Route: 048
     Dates: end: 20190410
  2. GINKOR FORT, G?LULE [Concomitant]
     Active Substance: GINKGO\HEPTAMINOL\TROXERUTIN
  3. METFORMINE [Concomitant]
     Active Substance: METFORMIN HYDROCHLORIDE

REACTIONS (1)
  - Hyponatraemia [Recovered/Resolved]

NARRATIVE: CASE EVENT DATE: 20190410
